FAERS Safety Report 11259172 (Version 1)
Quarter: 2015Q3

REPORT INFORMATION
  Report Type: Report from Study
  Country: KR (occurrence: KR)
  Receive Date: 20150710
  Receipt Date: 20150710
  Transmission Date: 20151125
  Serious: Yes (Other)
  Sender: FDA-Public Use
  Company Number: KR-ROCHE-1601987

PATIENT

DRUGS (3)
  1. ALCAINE [Concomitant]
     Active Substance: PROPARACAINE HYDROCHLORIDE
     Indication: LOCAL ANAESTHESIA
  2. TARIVID [Concomitant]
     Active Substance: OFLOXACIN
     Dosage: FOR 2 HOURS
     Route: 047
  3. BEVACIZUMAB [Suspect]
     Active Substance: BEVACIZUMAB
     Indication: PTERYGIUM
     Route: 057

REACTIONS (2)
  - Off label use [Unknown]
  - Conjunctival oedema [Recovered/Resolved]
